FAERS Safety Report 8908539 (Version 1)
Quarter: 2012Q4

REPORT INFORMATION
  Report Type: Report from Study
  Country: BR (occurrence: BR)
  Receive Date: 20121114
  Receipt Date: 20121114
  Transmission Date: 20130627
  Serious: Yes (Other)
  Sender: FDA-Public Use
  Company Number: BR-PFIZER INC-2012283914

PATIENT
  Age: 47 Year
  Sex: Female
  Weight: 71 kg

DRUGS (4)
  1. LIPITOR [Suspect]
     Dosage: 20 mg, 1x/day (one tablet daily)
     Route: 048
  2. DIAZEPAM [Concomitant]
     Indication: RELAXATION THERAPY
     Dosage: 1 DF, when the pressure is high
  3. DIAZEPAM [Concomitant]
     Indication: BLOOD PRESSURE HIGH
  4. DIOVAN [Concomitant]
     Indication: BLOOD PRESSURE HIGH
     Dosage: 1 DF, 1x/day

REACTIONS (2)
  - Cerebrovascular accident [Unknown]
  - Malaise [Unknown]
